FAERS Safety Report 6947519-7 (Version None)
Quarter: 2010Q3

REPORT INFORMATION
  Report Type: 
  Country: None (occurrence: None)
  Receive Date: 20100827
  Receipt Date: 20090917
  Transmission Date: 20110219
  Serious: No
  Sender: FDA-Public Use
  Company Number: US-ABBOTT-09P-163-0598252-00

PATIENT
  Sex: Male

DRUGS (8)
  1. NIASPAN [Suspect]
     Indication: LOW DENSITY LIPOPROTEIN INCREASED
     Dates: start: 20090916, end: 20090919
  2. LIPITOR [Concomitant]
     Indication: BLOOD CHOLESTEROL INCREASED
  3. INSULIN [Concomitant]
     Indication: TYPE 1 DIABETES MELLITUS
     Route: 058
  4. COREG [Concomitant]
     Indication: CARDIAC DISORDER
  5. COREG [Concomitant]
     Indication: HYPERTENSION
  6. ZESTRIL [Concomitant]
     Indication: CARDIAC DISORDER
  7. ZESTRIL [Concomitant]
     Indication: HYPERTENSION
  8. ASPIRIN [Concomitant]
     Indication: PROPHYLAXIS
     Dates: start: 20090918

REACTIONS (8)
  - EYE PAIN [None]
  - EYE SWELLING [None]
  - FEELING HOT [None]
  - LACRIMATION INCREASED [None]
  - LETHARGY [None]
  - MYDRIASIS [None]
  - PRURITUS [None]
  - RHINORRHOEA [None]
